FAERS Safety Report 6731826-7 (Version None)
Quarter: 2010Q2

REPORT INFORMATION
  Report Type: 
  Country: None (occurrence: None)
  Receive Date: 20100519
  Receipt Date: 20100513
  Transmission Date: 20101027
  Serious: Yes (Death, Other)
  Sender: FDA-Public Use
  Company Number: PHHY2010CA28983

PATIENT
  Sex: Female

DRUGS (3)
  1. ACLASTA [Suspect]
     Indication: OSTEOPOROSIS
     Dosage: 5 MG
     Route: 042
     Dates: start: 20090629
  2. DICETEL [Concomitant]
     Dosage: 100 MG
  3. PANTOPRAZOLE [Concomitant]
     Dosage: 40 MG

REACTIONS (3)
  - ABDOMINAL PAIN [None]
  - DEATH [None]
  - OVARIAN CANCER METASTATIC [None]
